FAERS Safety Report 9997882 (Version 1)
Quarter: 2014Q1

REPORT INFORMATION
  Report Type: Spontaneous
  Country: AR (occurrence: AR)
  Receive Date: 20140311
  Receipt Date: 20140311
  Transmission Date: 20141002
  Serious: Yes (Hospitalization, Other)
  Sender: FDA-Public Use
  Company Number: AR-PFIZER INC-2014066306

PATIENT
  Age: 64 Year
  Sex: Female

DRUGS (1)
  1. INLYTA [Suspect]
     Indication: RENAL CANCER
     Dosage: 10 MG, 1X/DAY
     Dates: start: 20131225

REACTIONS (4)
  - Pleural effusion [Not Recovered/Not Resolved]
  - Lung infection [Not Recovered/Not Resolved]
  - Disease progression [Not Recovered/Not Resolved]
  - Renal cancer [Not Recovered/Not Resolved]
